FAERS Safety Report 18029202 (Version 2)
Quarter: 2020Q3

REPORT INFORMATION
  Report Type: Spontaneous
  Country: FR (occurrence: FR)
  Receive Date: 20200715
  Receipt Date: 20200730
  Transmission Date: 20201103
  Serious: Yes (Hospitalization, Other)
  Sender: FDA-Public Use
  Company Number: FR-JNJFOC-20200709900

PATIENT
  Age: 24 Year
  Sex: Male
  Weight: 75 kg

DRUGS (6)
  1. IXEL [Concomitant]
     Active Substance: MILNACIPRAN HYDROCHLORIDE
     Indication: DEPRESSION
     Dates: start: 20200129
  2. TREVICTA [Suspect]
     Active Substance: PALIPERIDONE PALMITATE
  3. TREVICTA [Suspect]
     Active Substance: PALIPERIDONE PALMITATE
     Indication: PSYCHOTIC DISORDER
     Route: 030
     Dates: start: 20191112
  4. TREVICTA [Suspect]
     Active Substance: PALIPERIDONE PALMITATE
  5. IXEL [Concomitant]
     Active Substance: MILNACIPRAN HYDROCHLORIDE
     Indication: ANXIETY
  6. VALDOXAN [Concomitant]
     Active Substance: AGOMELATINE
     Indication: DEPRESSION
     Dates: start: 20200527

REACTIONS (2)
  - Type 1 diabetes mellitus [Unknown]
  - Psychotic disorder [Unknown]
